FAERS Safety Report 13681097 (Version 2)
Quarter: 2017Q4

REPORT INFORMATION
  Report Type: Spontaneous
  Country: US (occurrence: US)
  Receive Date: 20170623
  Receipt Date: 20171229
  Transmission Date: 20180320
  Serious: No
  Sender: FDA-Public Use
  Company Number: US-ASTRAZENECA-2017SE64697

PATIENT
  Age: 21398 Day
  Sex: Female
  Weight: 68 kg

DRUGS (3)
  1. SYMBICORT [Suspect]
     Active Substance: BUDESONIDE\FORMOTEROL FUMARATE DIHYDRATE
     Indication: ASTHMA
     Dosage: 160/4.5 MCG 2 PUFFS, TWO TIMES A DAY
     Route: 055
     Dates: start: 2014
  2. SYMBICORT [Suspect]
     Active Substance: BUDESONIDE\FORMOTEROL FUMARATE DIHYDRATE
     Indication: CHRONIC OBSTRUCTIVE PULMONARY DISEASE
     Dosage: 160/4.5 MCG 2 PUFFS, TWO TIMES A DAY
     Route: 055
     Dates: start: 2014
  3. TUDORZA PRESSAIR [Suspect]
     Active Substance: ACLIDINIUM BROMIDE
     Indication: ASTHMA
     Dosage: 400 MCG 1 PUFF, TWO TIMES A DAY
     Route: 055
     Dates: start: 2015

REACTIONS (7)
  - Memory impairment [Unknown]
  - Off label use [Unknown]
  - Intentional product misuse [Unknown]
  - Device malfunction [Unknown]
  - Product use in unapproved indication [Unknown]
  - Drug dose omission [Unknown]
  - Chest discomfort [Unknown]

NARRATIVE: CASE EVENT DATE: 20170616
